FAERS Safety Report 17233601 (Version 5)
Quarter: 2020Q1

REPORT INFORMATION
  Report Type: Report from Study
  Country: KR (occurrence: KR)
  Receive Date: 20200105
  Receipt Date: 20200219
  Transmission Date: 20200409
  Serious: Yes (Hospitalization)
  Sender: FDA-Public Use
  Company Number: KR-CELLTRION INC.-2019KR027712

PATIENT

DRUGS (12)
  1. CYRAMZA [Suspect]
     Active Substance: RAMUCIRUMAB
     Indication: GASTRIC CANCER RECURRENT
  2. HEPAMERZ [ADENOSINE TRIPHOSPHATE, DISODIUM SALT;CITIOLONE;CYANOCOBALAM [Concomitant]
     Dosage: 1000 MG
     Route: 042
     Dates: start: 20191224, end: 20191231
  3. CIMETIDINE [Concomitant]
     Active Substance: CIMETIDINE
     Indication: PREMEDICATION
     Dosage: 200 MG
     Route: 042
     Dates: start: 20190308
  4. TRISONEKIT [Concomitant]
     Active Substance: CEFTRIAXONE SODIUM
     Indication: ANTIBIOTIC PROPHYLAXIS
     Dosage: 2 G
     Route: 042
     Dates: start: 20191224, end: 20191231
  5. DEXAMETHASONE. [Concomitant]
     Active Substance: DEXAMETHASONE
     Indication: PREMEDICATION
     Dosage: 10 MG
     Route: 042
     Dates: start: 20190308, end: 20191217
  6. GENEXOL [PACLITAXEL] [Suspect]
     Active Substance: PACLITAXEL
     Indication: HER-2 POSITIVE GASTRIC CANCER
     Dosage: 145.6 MG, 80 MG/M2
     Route: 042
     Dates: start: 20190308, end: 20191217
  7. GENEXOL [PACLITAXEL] [Suspect]
     Active Substance: PACLITAXEL
     Indication: GASTRIC CANCER RECURRENT
  8. PENIRAMIN [Concomitant]
     Indication: PREMEDICATION
     Dosage: 4 MG
     Route: 042
     Dates: start: 20190308, end: 20191217
  9. HERZUMA [Suspect]
     Active Substance: TRASTUZUMAB-PKRB
     Indication: HER-2 POSITIVE GASTRIC CANCER
     Dosage: 138.0 MG, 2 MG/KG
     Route: 042
     Dates: start: 20190308, end: 20191217
  10. CYRAMZA [Suspect]
     Active Substance: RAMUCIRUMAB
     Indication: HER-2 POSITIVE GASTRIC CANCER
     Dosage: 552.0 MG, 8 MG/KG
     Route: 042
     Dates: start: 20190308, end: 20191217
  11. HERZUMA [Suspect]
     Active Substance: TRASTUZUMAB-PKRB
     Indication: GASTRIC CANCER RECURRENT
  12. FLAGYL [Concomitant]
     Active Substance: METRONIDAZOLE\METRONIDAZOLE HYDROCHLORIDE
     Dosage: 500 MG
     Route: 042
     Dates: start: 20191224, end: 20191231

REACTIONS (1)
  - Hepatotoxicity [Recovered/Resolved]

NARRATIVE: CASE EVENT DATE: 20191224
